FAERS Safety Report 9791646 (Version 3)
Quarter: 2014Q1

REPORT INFORMATION
  Report Type: Spontaneous
  Country: US (occurrence: US)
  Receive Date: 20140102
  Receipt Date: 20140114
  Transmission Date: 20141002
  Serious: Yes (Death, Other)
  Sender: FDA-Public Use
  Company Number: US-GLENMARK PHARMACEUTICALS EUROPE LIMITED-2013GMK007303

PATIENT
  Age: 40 Year
  Sex: Male

DRUGS (3)
  1. TOPIRAMATE [Suspect]
     Indication: CONVULSION
     Dosage: UNK
  2. DIVALPROEX SODIUM [Concomitant]
     Indication: PRODUCT USED FOR UNKNOWN INDICATION
     Dosage: UNK
  3. METFORMIN W/ROSIGLITAZONE [Concomitant]
     Indication: PRODUCT USED FOR UNKNOWN INDICATION
     Dosage: UNK

REACTIONS (17)
  - Heat stroke [Fatal]
  - Hyperthermia [Fatal]
  - Skin warm [Fatal]
  - Dry skin [Fatal]
  - Cardiac arrest [Fatal]
  - Unresponsive to stimuli [Unknown]
  - Supraventricular tachycardia [Unknown]
  - Ventricular extrasystoles [Unknown]
  - Bundle branch block right [Unknown]
  - Acute myocardial infarction [Unknown]
  - Myocardial ischaemia [Unknown]
  - Atrioventricular block [Unknown]
  - Renal failure acute [Unknown]
  - Rhabdomyolysis [Unknown]
  - Metabolic acidosis [Unknown]
  - Hypotension [Unknown]
  - Tachypnoea [Unknown]
